FAERS Safety Report 17490866 (Version 1)
Quarter: 2020Q1

REPORT INFORMATION
  Report Type: Spontaneous
  Country: HU (occurrence: HU)
  Receive Date: 20200304
  Receipt Date: 20200304
  Transmission Date: 20200409
  Serious: Yes (Hospitalization)
  Sender: FDA-Public Use
  Company Number: HU-BIOGEN-2020BI00844514

PATIENT
  Sex: Female

DRUGS (1)
  1. SPINRAZA [Suspect]
     Active Substance: NUSINERSEN
     Indication: SPINAL MUSCULAR ATROPHY
     Dosage: 12MG/5ML (0.,7.,14, 63 DAY, THEN 4 MONTHLY)
     Route: 037
     Dates: start: 201909

REACTIONS (3)
  - Cough [Unknown]
  - C-reactive protein increased [Unknown]
  - Pyrexia [Unknown]
